FAERS Safety Report 4699593-9 (Version None)
Quarter: 2005Q2

REPORT INFORMATION
  Report Type: 
  Country: None (occurrence: None)
  Receive Date: 20050204
  Receipt Date: 20050204
  Transmission Date: 20051028
  Serious: Yes (Other)
  Sender: FDA-Public Use
  Company Number: None

PATIENT
  Age: 43 Year
  Sex: Male
  Weight: 108.8633 kg

DRUGS (1)
  1. TEGRETOL [Suspect]
     Indication: SCHIZOAFFECTIVE DISORDER
     Dosage: 200MG PO  TID
     Route: 048

REACTIONS (5)
  - DIZZINESS [None]
  - DRUG DISPENSING ERROR [None]
  - NAUSEA [None]
  - THERAPEUTIC RESPONSE UNEXPECTED WITH DRUG SUBSTITUTION [None]
  - VOMITING [None]
